FAERS Safety Report 9753243 (Version 3)
Quarter: 2015Q3

REPORT INFORMATION
  Report Type: Spontaneous
  Country: US (occurrence: US)
  Receive Date: 20131213
  Receipt Date: 20150805
  Transmission Date: 20151125
  Serious: No
  Sender: FDA-Public Use
  Company Number: US-GILEAD-2010-0027334

PATIENT
  Age: 50 Year
  Sex: Female
  Weight: 103.87 kg

DRUGS (8)
  1. NIACIN. [Concomitant]
     Active Substance: NIACIN
  2. FOLIC ACID. [Concomitant]
     Active Substance: FOLIC ACID
  3. ARAVA [Concomitant]
     Active Substance: LEFLUNOMIDE
  4. LETAIRIS [Suspect]
     Active Substance: AMBRISENTAN
     Indication: PULMONARY ARTERIAL HYPERTENSION
     Route: 048
     Dates: start: 20100204
  5. BENICAR [Concomitant]
     Active Substance: OLMESARTAN MEDOXOMIL
  6. MOBIC [Concomitant]
     Active Substance: MELOXICAM
  7. RITUXAN [Concomitant]
     Active Substance: RITUXIMAB
  8. PREDNISONE. [Concomitant]
     Active Substance: PREDNISONE

REACTIONS (4)
  - Weight increased [Unknown]
  - Headache [Unknown]
  - Fatigue [Unknown]
  - Drooling [Unknown]
